FAERS Safety Report 6831343-X (Version None)
Quarter: 2010Q3

REPORT INFORMATION
  Report Type: 
  Country: None (occurrence: None)
  Receive Date: 20100707
  Receipt Date: 20100623
  Transmission Date: 20110219
  Serious: Yes (Hospitalization)
  Sender: FDA-Public Use
  Company Number: 7008977

PATIENT
  Age: 71 Year
  Sex: Female

DRUGS (4)
  1. REBIF [Suspect]
     Indication: MULTIPLE SCLEROSIS
     Dosage: 44 MCG, 3 IN 1 WK, SUBCUTANEOUS
     Route: 058
     Dates: start: 20090323, end: 20100604
  2. KEPPRA [Concomitant]
  3. GABAPENTIN [Concomitant]
  4. BACLOFEN [Concomitant]

REACTIONS (3)
  - CYSTITIS [None]
  - EPILEPSY [None]
  - ERYTHEMA [None]
